FAERS Safety Report 10237310 (Version 2)
Quarter: 2014Q4

REPORT INFORMATION
  Report Type: Spontaneous
  Country: US (occurrence: US)
  Receive Date: 20140613
  Receipt Date: 20141010
  Transmission Date: 20150528
  Serious: Yes (Hospitalization)
  Sender: FDA-Public Use
  Company Number: US-GILEAD-2014-0105214

PATIENT
  Age: 41 Year
  Sex: Female

DRUGS (5)
  1. LETAIRIS [Suspect]
     Active Substance: AMBRISENTAN
     Indication: EISENMENGER^S SYNDROME
  2. LETAIRIS [Suspect]
     Active Substance: AMBRISENTAN
     Indication: RIGHT VENTRICULAR FAILURE
  3. LETAIRIS [Suspect]
     Active Substance: AMBRISENTAN
     Indication: BLOOD PRESSURE SYSTOLIC
  4. LETAIRIS [Suspect]
     Active Substance: AMBRISENTAN
     Indication: PULMONARY HYPERTENSION
     Dosage: 5 MG, QD
     Route: 065
     Dates: start: 20120702
  5. LETAIRIS [Suspect]
     Active Substance: AMBRISENTAN
     Indication: SYSTOLIC DYSFUNCTION

REACTIONS (1)
  - Dyspnoea [Not Recovered/Not Resolved]
